FAERS Safety Report 18285740 (Version 2)
Quarter: 2020Q3

REPORT INFORMATION
  Report Type: Report from Study
  Country: GB (occurrence: GB)
  Receive Date: 20200918
  Receipt Date: 20200928
  Transmission Date: 20201103
  Serious: Yes (Death)
  Sender: FDA-Public Use
  Company Number: GB-WORLDWIDE CLINICAL TRIALS-2020-GB-000473

PATIENT
  Age: 69 Year
  Sex: Male
  Weight: 93.5 kg

DRUGS (2)
  1. DCC?2618 [Suspect]
     Active Substance: RIPRETINIB
     Indication: GASTROINTESTINAL STROMAL TUMOUR
  2. APIXABAN [Concomitant]
     Active Substance: APIXABAN
     Indication: PULMONARY EMBOLISM
     Dosage: 5 MILLIGRAM, BID
     Route: 048
     Dates: start: 201811, end: 20200826

REACTIONS (1)
  - Death [Fatal]

NARRATIVE: CASE EVENT DATE: 20200826
